FAERS Safety Report 4314473-6 (Version None)
Quarter: 2004Q1

REPORT INFORMATION
  Report Type: 
  Country: None (occurrence: None)
  Receive Date: 20040308
  Receipt Date: 20040227
  Transmission Date: 20041129
  Serious: Yes (Hospitalization, Other)
  Sender: FDA-Public Use
  Company Number: 2004-02-1928

PATIENT
  Age: 37 Year
  Sex: Female

DRUGS (7)
  1. NASONEX [Suspect]
     Indication: RHINITIS
     Dosage: 2 SPRAYS BID NASAL SPRAY
  2. DIANE TABLETS [Concomitant]
  3. ENALAPRIL MALEATE [Concomitant]
  4. SERETIDE (SALMETEROL XINAFOATE/FLUTICASONE PROPIONATE) [Concomitant]
  5. PREDNISONE [Concomitant]
  6. ESCITALOPRAM TABLETS [Concomitant]
  7. ANTRA TABLETS [Concomitant]

REACTIONS (2)
  - GASTROINTESTINAL DISORDER [None]
  - PREGNANCY [None]
